FAERS Safety Report 8505483-3 (Version None)
Quarter: 2012Q3

REPORT INFORMATION
  Report Type: 
  Country: None (occurrence: None)
  Receive Date: 20120712
  Receipt Date: 20120709
  Transmission Date: 20120928
  Serious: Yes (Death, Hospitalization, Other)
  Sender: FDA-Public Use
  Company Number: JP-B.I. PHARMACEUTICALS,INC./RIDGEFIELD-2012-BP-14400NB

PATIENT
  Age: 88 Year
  Sex: Female
  Weight: 42 kg

DRUGS (11)
  1. LASIX [Concomitant]
     Route: 065
  2. MAGLAX [Concomitant]
     Route: 065
  3. MERISLON [Concomitant]
     Route: 065
  4. ARGAMATE [Concomitant]
     Route: 065
  5. PRADAXA [Suspect]
     Dosage: 32.1429 MG
     Route: 048
     Dates: end: 20120626
  6. ENALAPRIL MALEATE [Concomitant]
     Route: 065
  7. CISDYNE [Concomitant]
     Route: 065
  8. ALDACTONE [Concomitant]
     Route: 065
  9. MOTILIUM [Concomitant]
     Route: 065
  10. PRADAXA [Suspect]
     Indication: ATRIAL FIBRILLATION
     Dosage: 110 MG
     Route: 048
     Dates: start: 20120121
  11. CARVEDILOL [Concomitant]
     Route: 065

REACTIONS (5)
  - SHOCK HAEMORRHAGIC [None]
  - CARDIAC FAILURE [None]
  - RENAL FAILURE [None]
  - GASTROINTESTINAL HAEMORRHAGE [None]
  - SEPSIS [None]
